FAERS Safety Report 12968588 (Version 3)
Quarter: 2016Q4

REPORT INFORMATION
  Report Type: Spontaneous
  Country: US (occurrence: US)
  Receive Date: 20161123
  Receipt Date: 20161205
  Transmission Date: 20170207
  Serious: Yes (Death, Life-Threatening, Hospitalization, Other)
  Sender: FDA-Public Use
  Company Number: US-JNJFOC-20161122721

PATIENT

DRUGS (2)
  1. LOPERAMIDE [Suspect]
     Active Substance: LOPERAMIDE
     Indication: DRUG WITHDRAWAL SYNDROME
     Dosage: AVERAGE DOSE OF 358 AND 196.5 MG
     Route: 065
  2. LOPERAMIDE [Suspect]
     Active Substance: LOPERAMIDE
     Indication: EUPHORIC MOOD
     Dosage: AVERAGE DOSE OF 358 AND 196.5 MG
     Route: 065

REACTIONS (12)
  - Withdrawal syndrome [Unknown]
  - Arrhythmia [Unknown]
  - Drug abuse [Unknown]
  - Electrocardiogram QT prolonged [Unknown]
  - Conduction disorder [Unknown]
  - Cardiotoxicity [Unknown]
  - Electrocardiogram QRS complex prolonged [Unknown]
  - Ventricular fibrillation [Unknown]
  - Ventricular tachycardia [Unknown]
  - Drug level increased [Unknown]
  - Death [Fatal]
  - Electrocardiogram abnormal [Unknown]
